FAERS Safety Report 12792457 (Version 1)
Quarter: 2016Q3

REPORT INFORMATION
  Report Type: Spontaneous
  Country: US (occurrence: US)
  Receive Date: 20160927
  Receipt Date: 20160927
  Transmission Date: 20161109
  Serious: Yes (Hospitalization, Disabling)
  Sender: FDA-Public Use
  Company Number: None

PATIENT
  Age: 78 Year
  Sex: Female
  Weight: 87.09 kg

DRUGS (8)
  1. ANASTROZOLE. [Concomitant]
     Active Substance: ANASTROZOLE
  2. TRAMADOL. [Concomitant]
     Active Substance: TRAMADOL
  3. XGEVA [Suspect]
     Active Substance: DENOSUMAB
     Indication: BREAST CANCER METASTATIC
     Dosage: EVERY 3 MOS WAS T 1 1/2 YEARS, MONTHLY - 15 MO. Q3 MONTHS 17 MON.
     Route: 058
     Dates: start: 201308, end: 201606
  4. TUMS [Concomitant]
     Active Substance: CALCIUM CARBONATE
  5. LOSARTAN. [Concomitant]
     Active Substance: LOSARTAN
  6. TYLENOL EXTRA STRENGTH [Concomitant]
     Active Substance: ACETAMINOPHEN
  7. NAPROXEN. [Concomitant]
     Active Substance: NAPROXEN
  8. CALCIUM [Concomitant]
     Active Substance: CALCIUM

REACTIONS (4)
  - Femur fracture [None]
  - Arthralgia [None]
  - Groin pain [None]
  - Compression fracture [None]

NARRATIVE: CASE EVENT DATE: 20160629
